FAERS Safety Report 25139206 (Version 1)
Quarter: 2025Q1

REPORT INFORMATION
  Report Type: Spontaneous
  Country: TW (occurrence: TW)
  Receive Date: 20250331
  Receipt Date: 20250331
  Transmission Date: 20250408
  Serious: Yes (Other)
  Sender: ROCHE
  Company Number: TW-ROCHE-10000242212

PATIENT
  Age: 68 Year
  Sex: Female

DRUGS (4)
  1. TARCEVA [Suspect]
     Active Substance: ERLOTINIB HYDROCHLORIDE
     Indication: Lung adenocarcinoma
     Route: 065
     Dates: start: 201905, end: 20190703
  2. TECENTRIQ [Suspect]
     Active Substance: ATEZOLIZUMAB
     Indication: Lung adenocarcinoma
     Route: 065
     Dates: start: 20250205
  3. AVASTIN [Suspect]
     Active Substance: BEVACIZUMAB
     Indication: Lung adenocarcinoma
     Route: 065
     Dates: start: 20250205
  4. PACLITAXEL [Suspect]
     Active Substance: PACLITAXEL
     Indication: Lung adenocarcinoma
     Route: 065
     Dates: start: 20250205

REACTIONS (7)
  - Pulmonary mass [Unknown]
  - Disease progression [Unknown]
  - Metastases to lung [Unknown]
  - Metastases to pleura [Unknown]
  - Soft tissue neoplasm [Unknown]
  - Metastases to liver [Unknown]
  - Off label use [Unknown]
